FAERS Safety Report 8154822-4 (Version None)
Quarter: 2012Q1

REPORT INFORMATION
  Report Type: 
  Country: None (occurrence: None)
  Receive Date: 20120221
  Receipt Date: 20120214
  Transmission Date: 20120608
  Serious: Yes (Other)
  Sender: FDA-Public Use
  Company Number: PHHY2011US55069

PATIENT
  Sex: Female
  Weight: 71.8 kg

DRUGS (18)
  1. FUROSEMIDE [Concomitant]
     Dates: start: 20110221
  2. PERCOCET [Concomitant]
     Dosage: UNK UKN, UNK
     Dates: start: 20110221
  3. PROCRIT [Concomitant]
     Dosage: UNK UKN, UNK
  4. ADVAIR DISKUS 100/50 [Concomitant]
     Dosage: UNK UKN, UNK
     Dates: start: 20110415
  5. NEURONIL [Concomitant]
     Dosage: 300 MG, UNK
     Dates: start: 20110221
  6. FOLIC ACID [Concomitant]
     Dosage: 1 MG, UNK
     Dates: start: 20110221
  7. XANAX [Concomitant]
     Dosage: 0.25 MG, UNK
     Dates: start: 20110221
  8. TOPROL-XL [Concomitant]
     Dosage: 50 MG, 24 HR
     Dates: start: 20110221
  9. NASONEX [Concomitant]
     Dosage: 50 UG, UNK
     Dates: start: 20110221
  10. ASPIRIN [Concomitant]
     Dosage: 81 MG, UNK
     Dates: start: 20110221
  11. NEUPOGEN [Concomitant]
     Dosage: 480 UG, 0.8 ML SYRINGE
     Dates: start: 20110221
  12. METHADONE HCL [Concomitant]
     Dosage: 10 MG, UNK
     Dates: start: 20110415
  13. IMDUR [Concomitant]
     Dosage: 60 MG, 24 HR TAB
     Dates: start: 20110221
  14. SPIRIVA [Concomitant]
     Dosage: 18 UG, UNK
     Dates: start: 20110415
  15. NEXIUM [Concomitant]
     Dosage: 40 MG, UNK
     Dates: start: 20110221
  16. COLACE [Concomitant]
     Dosage: 100 MG, UNK
     Dates: start: 20110415
  17. EXJADE [Suspect]
     Indication: MYELODYSPLASTIC SYNDROME
     Dosage: 1500 MG, DAILY
     Route: 048
     Dates: start: 20060501, end: 20060101
  18. REMERON [Concomitant]
     Dosage: 15 MG, UNK
     Dates: start: 20110221

REACTIONS (4)
  - BONE PAIN [None]
  - FATIGUE [None]
  - FULL BLOOD COUNT DECREASED [None]
  - HAEMOGLOBIN DECREASED [None]
